FAERS Safety Report 10074416 (Version 1)
Quarter: 2014Q2

REPORT INFORMATION
  Report Type: Spontaneous
  Country: US (occurrence: US)
  Receive Date: 20140411
  Receipt Date: 20140411
  Transmission Date: 20141212
  Serious: No
  Sender: FDA-Public Use
  Company Number: US-SANOFI-AVENTIS-2013SA077777

PATIENT
  Age: 51 Year
  Sex: Female

DRUGS (2)
  1. ALLEGRA D [Suspect]
     Route: 048
  2. ALLEGRA D [Suspect]
     Route: 048

REACTIONS (4)
  - Heart rate increased [Unknown]
  - Dyspepsia [Unknown]
  - Dysphagia [Unknown]
  - Insomnia [Unknown]
